FAERS Safety Report 5884625-2 (Version None)
Quarter: 2008Q3

REPORT INFORMATION
  Report Type: 
  Country: None (occurrence: None)
  Receive Date: 20080916
  Receipt Date: 20080904
  Transmission Date: 20090109
  Serious: Yes (Other)
  Sender: FDA-Public Use
  Company Number: US-WYE-H05896808

PATIENT
  Age: 15 Year
  Sex: Female

DRUGS (2)
  1. DEXTROMETHORPHAN HYDROBROMIDE [Suspect]
     Indication: DRUG ABUSE
     Dosage: UNKNOWN
     Route: 048
  2. CAFFEINE [Suspect]
     Indication: DRUG ABUSE
     Dosage: UNKNOWN
     Route: 048

REACTIONS (4)
  - DRUG ABUSE [None]
  - FEAR [None]
  - OVERDOSE [None]
  - VOMITING [None]
